FAERS Safety Report 6420082-5 (Version None)
Quarter: 2009Q4

REPORT INFORMATION
  Report Type: 
  Country: None (occurrence: None)
  Receive Date: 20091029
  Receipt Date: 20091022
  Transmission Date: 20100525
  Serious: Yes (Other)
  Sender: FDA-Public Use
  Company Number: US-RB-020603-09

PATIENT
  Age: 56 Year
  Sex: Male

DRUGS (1)
  1. SUBOXONE [Suspect]
     Indication: DRUG USE FOR UNKNOWN INDICATION
     Dosage: UNKNOWN DOSE AND FREQUENCY
     Route: 065

REACTIONS (9)
  - ASTHENIA [None]
  - DIZZINESS [None]
  - FALL [None]
  - HYPOAESTHESIA ORAL [None]
  - INFLUENZA [None]
  - LOSS OF CONSCIOUSNESS [None]
  - PAIN [None]
  - SKIN EXFOLIATION [None]
  - WEIGHT INCREASED [None]
